FAERS Safety Report 10334739 (Version 1)
Quarter: 2014Q3

REPORT INFORMATION
  Report Type: Spontaneous
  Country: US (occurrence: None)
  Receive Date: 20140721
  Receipt Date: 20140721
  Transmission Date: 20150326
  Serious: Yes (Hospitalization, Other)
  Sender: FDA-Public Use
  Company Number: US-ZYDUS-004097

PATIENT
  Age: 72 Year
  Sex: Male

DRUGS (1)
  1. DONEPEZIL (DONEPEZIL) [Suspect]
     Active Substance: DONEPEZIL

REACTIONS (7)
  - Bradycardia [None]
  - Sinus arrest [None]
  - Dizziness [None]
  - Sick sinus syndrome [None]
  - Atrial fibrillation [None]
  - Syncope [None]
  - Loss of consciousness [None]
